FAERS Safety Report 16834578 (Version 1)
Quarter: 2019Q3

REPORT INFORMATION
  Report Type: Spontaneous
  Country: JP (occurrence: JP)
  Receive Date: 20190920
  Receipt Date: 20190920
  Transmission Date: 20191005
  Serious: Yes (Hospitalization)
  Sender: FDA-Public Use
  Company Number: JP-JNJFOC-20190925620

PATIENT
  Age: 38 Year
  Sex: Female

DRUGS (10)
  1. CANAGLIFLOZIN [Suspect]
     Active Substance: CANAGLIFLOZIN
     Dosage: 100 MILLIGRAM, QD
     Route: 048
     Dates: start: 20170213, end: 20190713
  2. CANAGLIFLOZIN [Suspect]
     Active Substance: CANAGLIFLOZIN
     Indication: TYPE 2 DIABETES MELLITUS
     Dosage: 100 MILLIGRAM, QD
     Route: 048
     Dates: start: 20160705, end: 20161205
  3. METGLUCO [Concomitant]
     Active Substance: METFORMIN HYDROCHLORIDE
     Indication: TYPE 2 DIABETES MELLITUS
     Dosage: 500 MILLIGRAM, BID
     Route: 048
     Dates: start: 20160705, end: 20161205
  4. METGLUCO [Concomitant]
     Active Substance: METFORMIN HYDROCHLORIDE
     Dosage: 750 MILLIGRAM, BID
     Route: 048
     Dates: start: 20190725
  5. BYDUREON [Concomitant]
     Active Substance: EXENATIDE
     Dosage: 2 MG, AS NEEDED
     Route: 051
     Dates: start: 20161024, end: 20161205
  6. METGLUCO [Concomitant]
     Active Substance: METFORMIN HYDROCHLORIDE
     Dosage: 500 MILLIGRAM, BID
     Route: 048
     Dates: start: 20170213, end: 20170405
  7. METGLUCO [Concomitant]
     Active Substance: METFORMIN HYDROCHLORIDE
     Dosage: 625 MILLIGRAM, BID
     Route: 048
     Dates: start: 20170406, end: 20181227
  8. BYDUREON [Concomitant]
     Active Substance: EXENATIDE
     Indication: TYPE 2 DIABETES MELLITUS
     Dosage: 2 MILLIGRAM, 1/WEEK
     Route: 058
     Dates: start: 20160705, end: 201609
  9. METGLUCO [Concomitant]
     Active Substance: METFORMIN HYDROCHLORIDE
     Dosage: 750 MILLIGRAM, BID
     Route: 048
     Dates: start: 20181228, end: 20190713
  10. BYDUREON [Concomitant]
     Active Substance: EXENATIDE
     Dosage: 2 MG, AS NEEDED
     Route: 051
     Dates: start: 20170313, end: 20190713

REACTIONS (1)
  - Diverticulitis [Recovered/Resolved]

NARRATIVE: CASE EVENT DATE: 20190713
